FAERS Safety Report 21587729 (Version 1)
Quarter: 2022Q4

REPORT INFORMATION
  Report Type: Report from Study
  Country: US (occurrence: US)
  Receive Date: 20221114
  Receipt Date: 20221114
  Transmission Date: 20230112
  Serious: No
  Sender: FDA-Public Use
  Company Number: US-ABBVIE-4164031

PATIENT
  Sex: Male

DRUGS (1)
  1. RINVOQ [Suspect]
     Active Substance: UPADACITINIB
     Indication: Gastrointestinal inflammation
     Dosage: FORM STRENGTH: 45 MG
     Route: 048
     Dates: start: 20221013

REACTIONS (2)
  - Off label use [Unknown]
  - Colitis [Unknown]

NARRATIVE: CASE EVENT DATE: 20220101
